FAERS Safety Report 8584185-1 (Version None)
Quarter: 2012Q3

REPORT INFORMATION
  Report Type: 
  Country: None (occurrence: None)
  Receive Date: 20120810
  Receipt Date: 20120620
  Transmission Date: 20120928
  Serious: No
  Sender: FDA-Public Use
  Company Number: US-009507513-2012SP023387

PATIENT

DRUGS (8)
  1. ZINC (UNSPECIFIED) [Concomitant]
     Indication: PRODUCT USED FOR UNKNOWN INDICATION
     Dosage: UNK UNK, UNKNOWN
  2. CHOLECALCIFEROL [Concomitant]
     Indication: PRODUCT USED FOR UNKNOWN INDICATION
     Dosage: UNK UNK, UNKNOWN
  3. CLARITIN REDITABS [Suspect]
     Indication: SNEEZING
  4. CLARITIN REDITABS [Suspect]
     Indication: RHINORRHOEA
  5. CLARITIN REDITABS [Suspect]
     Indication: HYPERSENSITIVITY
     Dosage: 10 MG, ONCE
     Route: 048
     Dates: start: 20120322
  6. BROMPHENIRAMINE MALEATE + PSEUDOEPHEDRINE HCL [Concomitant]
     Indication: HYPERSENSITIVITY
     Dosage: UNK UNK, UNKNOWN
  7. ASCORBIC ACID [Concomitant]
     Indication: PRODUCT USED FOR UNKNOWN INDICATION
     Dosage: UNK UNK, UNKNOWN
  8. CITRACAL + D [Concomitant]
     Indication: PRODUCT USED FOR UNKNOWN INDICATION
     Dosage: UNK UNK, UNKNOWN

REACTIONS (1)
  - DRUG INEFFECTIVE [None]
